FAERS Safety Report 23231165 (Version 1)
Quarter: 2023Q4

REPORT INFORMATION
  Report Type: Spontaneous
  Country: GB (occurrence: GB)
  Receive Date: 20231127
  Receipt Date: 20231127
  Transmission Date: 20240109
  Serious: Yes (Hospitalization, Other)
  Sender: FDA-Public Use
  Company Number: GB-GILEAD-2023-0644348

PATIENT
  Sex: Male

DRUGS (12)
  1. TRUVADA [Suspect]
     Active Substance: EMTRICITABINE\TENOFOVIR DISOPROXIL FUMARATE
     Indication: HIV infection
     Route: 065
  2. PREDNISOLONE [Concomitant]
     Active Substance: PREDNISOLONE
     Dosage: 1.5 MG/KG
  3. PREDNISOLONE [Concomitant]
     Active Substance: PREDNISOLONE
     Dosage: 60 MG
  4. RALTEGRAVIR [Concomitant]
     Active Substance: RALTEGRAVIR
  5. ETHAMBUTOL [Concomitant]
     Active Substance: ETHAMBUTOL HYDROCHLORIDE
  6. RIFABUTIN [Concomitant]
     Active Substance: RIFABUTIN
  7. AZITHROMYCIN [Concomitant]
     Active Substance: AZITHROMYCIN
  8. LEVOFLOXACIN [Concomitant]
     Active Substance: LEVOFLOXACIN
  9. OCTREOTIDE [Concomitant]
     Active Substance: OCTREOTIDE
     Dosage: 100 ?G TWO TIMES  PER DAY
     Route: 058
  10. OCTREOTIDE [Concomitant]
     Active Substance: OCTREOTIDE
     Dosage: 200 ?G THREE TIMES PER DAY, TID
  11. TAMOXIFEN [Concomitant]
     Active Substance: TAMOXIFEN
     Dosage: 20 MG, QD
     Route: 048
  12. THALIDOMIDE [Concomitant]
     Active Substance: THALIDOMIDE
     Dosage: 100 MG, QD

REACTIONS (2)
  - Immune reconstitution inflammatory syndrome [Not Recovered/Not Resolved]
  - Mesenteric panniculitis [Unknown]
